FAERS Safety Report 4971228-7 (Version None)
Quarter: 2006Q2

REPORT INFORMATION
  Report Type: 
  Country: None (occurrence: None)
  Receive Date: 20060413
  Receipt Date: 20051215
  Transmission Date: 20061013
  Serious: Yes (Hospitalization)
  Sender: FDA-Public Use
  Company Number: US-MERCK-0512USA02530

PATIENT
  Age: 58 Year
  Sex: Male
  Weight: 108 kg

DRUGS (20)
  1. VIOXX [Suspect]
     Indication: BACK PAIN
     Route: 048
     Dates: start: 20010620, end: 20040621
  2. GLYBURIDE [Concomitant]
     Indication: DIABETES MELLITUS
     Route: 065
  3. LOTENSIN [Concomitant]
     Indication: HYPERTENSION
     Route: 065
     Dates: start: 20000119
  4. FLEXERIL [Concomitant]
     Indication: PAIN
     Route: 048
     Dates: start: 20000119
  5. ADVICOR [Concomitant]
     Indication: BLOOD CHOLESTEROL INCREASED
     Route: 065
     Dates: start: 20021014
  6. ALLOPURINOL [Concomitant]
     Route: 065
     Dates: start: 20000119
  7. ZOLOFT [Concomitant]
     Indication: ANXIETY
     Route: 065
  8. ZOLOFT [Concomitant]
     Indication: DEPRESSION
     Route: 065
  9. DYAZIDE [Concomitant]
     Indication: HYPERTENSION
     Route: 065
     Dates: start: 20000119
  10. TYLENOL W/ CODEINE NO. 4 [Concomitant]
     Indication: PAIN
     Route: 065
     Dates: start: 20000119, end: 20050306
  11. ASPIRIN [Concomitant]
     Indication: PAIN
     Route: 065
     Dates: start: 20000601
  12. VITAMIN E [Concomitant]
     Route: 065
     Dates: start: 19891001
  13. GLUCOPHAGE [Concomitant]
     Indication: DIABETES MELLITUS
     Route: 065
  14. TRICOR [Concomitant]
     Route: 065
     Dates: start: 20020802, end: 20020929
  15. LIBRIUM [Concomitant]
     Indication: DEPRESSION
     Route: 065
  16. GEMFIBROZIL [Concomitant]
     Indication: BLOOD CHOLESTEROL INCREASED
     Route: 065
     Dates: start: 20000823, end: 20020715
  17. DOXEPIN HYDROCHLORIDE [Concomitant]
     Indication: DEPRESSION
     Route: 065
  18. LUNESTA [Concomitant]
     Indication: SLEEP DISORDER
     Route: 065
  19. TRIAZOLAM [Concomitant]
     Route: 065
  20. ACTOS [Concomitant]
     Indication: DIABETES MELLITUS
     Route: 065

REACTIONS (1)
  - CEREBROVASCULAR ACCIDENT [None]
